FAERS Safety Report 24129330 (Version 2)
Quarter: 2024Q3

REPORT INFORMATION
  Report Type: Spontaneous
  Country: US (occurrence: US)
  Receive Date: 20240723
  Receipt Date: 20240830
  Transmission Date: 20241017
  Serious: No
  Sender: NEUROCRINE BIOSCIENCES
  Company Number: US-NEUROCRINE BIOSCIENCES INC.-2024NBI07017

PATIENT
  Sex: Female

DRUGS (6)
  1. INGREZZA [Suspect]
     Active Substance: VALBENAZINE
     Indication: Tardive dyskinesia
     Dosage: 40 MILLIGRAM
     Route: 048
     Dates: start: 20240514, end: 20240618
  2. BUPROPION HYDROCHLORIDE [Concomitant]
     Active Substance: BUPROPION HYDROCHLORIDE
     Indication: Affective disorder
     Dosage: 150 MILLIGRAM
     Route: 048
     Dates: start: 20240731
  3. DULOXETINE [Concomitant]
     Active Substance: DULOXETINE
     Indication: Bipolar I disorder
     Dosage: 60 MILLIGRAM
     Route: 048
     Dates: start: 20240321
  4. LAMOTRIGINE [Concomitant]
     Active Substance: LAMOTRIGINE
     Indication: Bipolar I disorder
     Dosage: 100 MILLIGRAM
     Route: 048
     Dates: start: 20240326
  5. LAMOTRIGINE [Concomitant]
     Active Substance: LAMOTRIGINE
     Dosage: 200 MILLIGRAM
     Route: 048
     Dates: start: 20240430
  6. TOPIRAMATE [Concomitant]
     Active Substance: TOPIRAMATE
     Indication: Bipolar I disorder
     Dosage: 50MG AND 25MG
     Route: 048
     Dates: start: 20240805

REACTIONS (4)
  - Tardive dyskinesia [Recovering/Resolving]
  - Dyskinesia [Recovered/Resolved]
  - Tremor [Not Recovered/Not Resolved]
  - Parkinsonism [Unknown]

NARRATIVE: CASE EVENT DATE: 20240613
